FAERS Safety Report 8366307-0 (Version None)
Quarter: 2012Q2

REPORT INFORMATION
  Report Type: 
  Country: None (occurrence: None)
  Receive Date: 20120517
  Receipt Date: 20120514
  Transmission Date: 20120825
  Serious: Yes (Hospitalization)
  Sender: FDA-Public Use
  Company Number: PHHY2012EE030510

PATIENT
  Sex: Female

DRUGS (1)
  1. EXJADE [Suspect]
     Indication: IRON OVERLOAD
     Dosage: 250 MG, TID
     Route: 048
     Dates: start: 20120201, end: 20120209

REACTIONS (8)
  - C-REACTIVE PROTEIN INCREASED [None]
  - BLOOD SODIUM INCREASED [None]
  - CIRCULATORY COLLAPSE [None]
  - FALL [None]
  - BLOOD CREATINE PHOSPHOKINASE INCREASED [None]
  - BLOOD CREATININE INCREASED [None]
  - MYOGLOBIN BLOOD INCREASED [None]
  - BLOOD CREATINE PHOSPHOKINASE MB INCREASED [None]
